FAERS Safety Report 5227119-X (Version None)
Quarter: 2007Q1

REPORT INFORMATION
  Report Type: 
  Country: None (occurrence: None)
  Receive Date: 20070130
  Receipt Date: 20070127
  Transmission Date: 20070707
  Serious: Yes (Other)
  Sender: FDA-Public Use
  Company Number: 233421

PATIENT
  Age: 85 Year
  Sex: Female
  Weight: 60.3 kg

DRUGS (2)
  1. LUCENTIS [Suspect]
     Indication: MACULAR DEGENERATION
     Dosage: 0.5 MG,
     Dates: start: 20061130
  2. ULTRAM [Concomitant]

REACTIONS (4)
  - CONSTIPATION [None]
  - DIZZINESS [None]
  - DYSSTASIA [None]
  - VERTIGO [None]
